FAERS Safety Report 18054940 (Version 2)
Quarter: 2020Q4

REPORT INFORMATION
  Report Type: Spontaneous
  Country: CN (occurrence: CN)
  Receive Date: 20200722
  Receipt Date: 20201027
  Transmission Date: 20210113
  Serious: Yes (Death, Hospitalization, Other)
  Sender: FDA-Public Use
  Company Number: CN-ASTELLAS-2020US021382

PATIENT
  Age: 82 Year
  Sex: Male
  Weight: 52 kg

DRUGS (1)
  1. XTANDI [Suspect]
     Active Substance: ENZALUTAMIDE
     Indication: PRODUCT USED FOR UNKNOWN INDICATION
     Dosage: UNK, UNKNOWN FREQ.
     Route: 048
     Dates: start: 20200618, end: 20200910

REACTIONS (9)
  - Decreased appetite [Unknown]
  - Cognitive disorder [Not Recovered/Not Resolved]
  - Cardiac arrest [Fatal]
  - Vomiting [Unknown]
  - Nausea [Recovering/Resolving]
  - Respiratory arrest [Fatal]
  - Multiple organ dysfunction syndrome [Fatal]
  - Pyrexia [Recovering/Resolving]
  - Deafness unilateral [Not Recovered/Not Resolved]

NARRATIVE: CASE EVENT DATE: 2020
